FAERS Safety Report 9425623 (Version 1)
Quarter: 2013Q3

REPORT INFORMATION
  Report Type: Spontaneous
  Country: US (occurrence: US)
  Receive Date: 20130729
  Receipt Date: 20130729
  Transmission Date: 20140515
  Serious: Yes (Other)
  Sender: FDA-Public Use
  Company Number: US-MYLANLABS-2013S1011829

PATIENT
  Sex: Female

DRUGS (1)
  1. LEVOTHYROXINE TABLETS [Suspect]
     Indication: THYROID CANCER
     Route: 048
     Dates: start: 201304

REACTIONS (1)
  - Palpitations [Not Recovered/Not Resolved]
